FAERS Safety Report 5630382-4 (Version None)
Quarter: 2008Q1

REPORT INFORMATION
  Report Type: 
  Country: None (occurrence: None)
  Receive Date: 20080219
  Receipt Date: 20080213
  Transmission Date: 20080703
  Serious: Yes (Other)
  Sender: FDA-Public Use
  Company Number: PHEH2008US01765

PATIENT
  Sex: Female

DRUGS (3)
  1. PAMIDRONATE DISODIUM [Suspect]
     Route: 065
  2. FEMARA [Concomitant]
  3. ZOMETA [Suspect]
     Route: 065
     Dates: start: 20080209

REACTIONS (2)
  - RENAL FAILURE [None]
  - RHABDOMYOLYSIS [None]
